FAERS Safety Report 24980929 (Version 1)
Quarter: 2025Q1

REPORT INFORMATION
  Report Type: Spontaneous
  Country: IT (occurrence: IT)
  Receive Date: 20250218
  Receipt Date: 20250218
  Transmission Date: 20250409
  Serious: Yes (Death, Hospitalization, Other)
  Sender: HIKMA
  Company Number: None

PATIENT
  Age: 67 Year
  Sex: Female
  Weight: 55 kg

DRUGS (1)
  1. DOCETAXEL [Suspect]
     Active Substance: DOCETAXEL
     Indication: Adjuvant therapy
     Route: 042
     Dates: start: 20241211, end: 20241211

REACTIONS (6)
  - Pancytopenia [Fatal]
  - Abdominal pain [Fatal]
  - Intestinal ischaemia [Fatal]
  - Gastrointestinal necrosis [Fatal]
  - Shock [Fatal]
  - Cardiac arrest [Fatal]

NARRATIVE: CASE EVENT DATE: 20241218
